FAERS Safety Report 20869538 (Version 3)
Quarter: 2022Q2

REPORT INFORMATION
  Report Type: Report from Study
  Country: US (occurrence: US)
  Receive Date: 20220524
  Receipt Date: 20220527
  Transmission Date: 20220721
  Serious: Yes (Death, Other)
  Sender: FDA-Public Use
  Company Number: US-ABBVIE-22K-163-4409130-00

PATIENT
  Sex: Female
  Weight: 92.616 kg

DRUGS (3)
  1. SYNTHROID [Suspect]
     Active Substance: LEVOTHYROXINE SODIUM
     Indication: Hypothyroidism
     Route: 048
     Dates: start: 1992, end: 20220514
  2. KEYTRUDA [Suspect]
     Active Substance: PEMBROLIZUMAB
     Indication: Product used for unknown indication
     Route: 065
  3. MODERNA COVID-19 VACCINE [Concomitant]
     Active Substance: ELASOMERAN
     Indication: COVID-19 immunisation
     Route: 030

REACTIONS (5)
  - Death [Fatal]
  - Bladder cancer [Fatal]
  - Metastatic carcinoma of the bladder [Fatal]
  - Pancreatic failure [Fatal]
  - Type 1 diabetes mellitus [Recovered/Resolved]

NARRATIVE: CASE EVENT DATE: 20090101
